FAERS Safety Report 18771117 (Version 4)
Quarter: 2021Q1

REPORT INFORMATION
  Report Type: Spontaneous
  Country: US (occurrence: US)
  Receive Date: 20210122
  Receipt Date: 20210222
  Transmission Date: 20210419
  Serious: Yes (Other)
  Sender: FDA-Public Use
  Company Number: US-GLAXOSMITHKLINE-US2021AMR008445

PATIENT
  Sex: Female

DRUGS (3)
  1. ZEJULA [Suspect]
     Active Substance: NIRAPARIB
     Indication: OVARIAN CANCER
     Dosage: 200 MG, QD
     Dates: start: 20210107
  2. IRON [Concomitant]
     Active Substance: IRON
     Indication: PRODUCT USED FOR UNKNOWN INDICATION
     Dosage: UNK
  3. ZEJULA [Suspect]
     Active Substance: NIRAPARIB
     Dosage: 200 MG, QD

REACTIONS (12)
  - Renal impairment [Unknown]
  - Fatigue [Not Recovered/Not Resolved]
  - Haemoglobin abnormal [Unknown]
  - Nausea [Unknown]
  - Dysphonia [Not Recovered/Not Resolved]
  - Stomatitis [Unknown]
  - Red blood cell count abnormal [Unknown]
  - Carbon dioxide decreased [Unknown]
  - Chronic kidney disease [Unknown]
  - Oropharyngeal pain [Unknown]
  - Tinnitus [Unknown]
  - Dry mouth [Unknown]
